FAERS Safety Report 24135940 (Version 1)
Quarter: 2024Q3

REPORT INFORMATION
  Report Type: Other
  Country: CA (occurrence: CA)
  Receive Date: 20240725
  Receipt Date: 20240725
  Transmission Date: 20241016
  Serious: Yes (Other)
  Sender: APPCO PHARMA
  Company Number: CA-Appco Pharma LLC-2159580

PATIENT
  Age: 41 Year
  Sex: Female

DRUGS (4)
  1. HYDROXYCHLOROQUINE SULFATE [Suspect]
     Active Substance: HYDROXYCHLOROQUINE SULFATE
     Indication: Rheumatoid arthritis
     Route: 065
  2. PREDNISONE [Suspect]
     Active Substance: PREDNISONE
     Route: 048
  3. LEFLUNOMIDE [Suspect]
     Active Substance: LEFLUNOMIDE
     Route: 065
  4. METHOTREXATE [Suspect]
     Active Substance: METHOTREXATE
     Route: 065

REACTIONS (1)
  - Drug ineffective [Unknown]
